FAERS Safety Report 6432633-5 (Version None)
Quarter: 2009Q4

REPORT INFORMATION
  Report Type: 
  Country: None (occurrence: None)
  Receive Date: 20091109
  Receipt Date: 20091102
  Transmission Date: 20100525
  Serious: Yes (Hospitalization)
  Sender: FDA-Public Use
  Company Number: US-ELI_LILLY_AND_COMPANY-US200910003224

PATIENT
  Sex: Male

DRUGS (11)
  1. HUMULIN 70/30 [Suspect]
     Dosage: UNK, UNK
     Dates: end: 20091001
  2. DEPAKOTE [Concomitant]
  3. LISINOPRIL [Concomitant]
  4. VITAMIN E [Concomitant]
     Dosage: 400 D/F, UNK
  5. BENZTROPINE MESYLATE [Concomitant]
  6. CARBAMAZEPINE [Concomitant]
  7. MAGNESIUM OXIDE [Concomitant]
  8. AMANTADINE HCL [Concomitant]
  9. METFORMIN [Concomitant]
  10. INVEGA [Concomitant]
  11. LACTULOSE [Concomitant]

REACTIONS (3)
  - PSYCHOTIC DISORDER [None]
  - TREMOR [None]
  - WEIGHT DECREASED [None]
